FAERS Safety Report 14863870 (Version 1)
Quarter: 2018Q2

REPORT INFORMATION
  Report Type: Report from Study
  Country: JP (occurrence: JP)
  Receive Date: 20180508
  Receipt Date: 20180508
  Transmission Date: 20180711
  Serious: Yes (Death, Hospitalization)
  Sender: FDA-Public Use
  Company Number: JP-SA-2018SA123007

PATIENT
  Age: 51 Year
  Sex: Male

DRUGS (2)
  1. EVOLTRA [Suspect]
     Active Substance: CLOFARABINE
     Indication: ACUTE MYELOID LEUKAEMIA
     Route: 041
     Dates: start: 20140828, end: 20140901
  2. EVOLTRA [Suspect]
     Active Substance: CLOFARABINE
     Indication: ACUTE MYELOID LEUKAEMIA
     Route: 041
     Dates: start: 20141010, end: 20141014

REACTIONS (4)
  - Genital ulceration [Not Recovered/Not Resolved]
  - Bone marrow failure [Recovered/Resolved]
  - Alanine aminotransferase increased [Recovered/Resolved]
  - Respiratory failure [Not Recovered/Not Resolved]

NARRATIVE: CASE EVENT DATE: 201408
